FAERS Safety Report 5309210-2 (Version None)
Quarter: 2007Q2

REPORT INFORMATION
  Report Type: 
  Country: None (occurrence: None)
  Receive Date: 20070423
  Receipt Date: 20070410
  Transmission Date: 20071010
  Serious: Yes (Hospitalization, Other)
  Sender: FDA-Public Use
  Company Number: DSU-2007-00063

PATIENT
  Age: 55 Year
  Sex: Female
  Weight: 52.1637 kg

DRUGS (9)
  1. BENICAR HCT [Suspect]
     Indication: HYPERTENSION
     Dosage: PER ORAL
     Route: 048
     Dates: end: 20070101
  2. CHANTIX [Suspect]
     Indication: SMOKING CESSATION THERAPY
     Dosage: SEE IMAGE, PER ORAL
     Route: 048
     Dates: start: 20070308, end: 20070310
  3. CHANTIX [Suspect]
     Indication: SMOKING CESSATION THERAPY
     Dosage: SEE IMAGE, PER ORAL
     Route: 048
     Dates: start: 20070311, end: 20070314
  4. CHANTIX [Suspect]
     Indication: SMOKING CESSATION THERAPY
     Dosage: SEE IMAGE, PER ORAL
     Route: 048
     Dates: start: 20070315, end: 20070319
  5. PREDNISONE (PREDNISONE) (PREDNISONE) [Concomitant]
  6. PLAQUENIL (HYDROXYCHLOROQUINE SULFATE) (HYDROXYCHLOROQUINE SULFATE) [Concomitant]
  7. LOPRESSOR [Concomitant]
  8. THIAMIN (THIAMINE HYDROCHLORIDE) (THIAMINE HYDROCHLORIDE) [Concomitant]
  9. MULTIVITAMIN [Concomitant]

REACTIONS (7)
  - BLOOD PRESSURE INCREASED [None]
  - COMA [None]
  - DRY MOUTH [None]
  - HYPONATRAEMIA [None]
  - IRON DEFICIENCY ANAEMIA [None]
  - LOSS OF CONSCIOUSNESS [None]
  - NAUSEA [None]
